FAERS Safety Report 5599719-9 (Version None)
Quarter: 2008Q1

REPORT INFORMATION
  Report Type: 
  Country: None (occurrence: None)
  Receive Date: 20080118
  Receipt Date: 20080118
  Transmission Date: 20080703
  Serious: No
  Sender: FDA-Public Use
  Company Number: None

PATIENT
  Age: 29 Year
  Sex: Female
  Weight: 63.6 kg

DRUGS (8)
  1. BEVACIZUMAB [Suspect]
     Indication: COLON CANCER
     Dosage: 314 MG (1ST DOSE IV)
     Route: 042
     Dates: start: 20071214
  2. FLUOROURACIL [Concomitant]
  3. LEUCOVORIN CALCIUM [Concomitant]
  4. ZOFRAN [Concomitant]
  5. CIMETIDINE [Concomitant]
  6. DIPHENHYDRAMINE HCL [Concomitant]
  7. DEXAMETHASONE TAB [Concomitant]
  8. OXALIPLATIN [Suspect]
     Indication: COLON CANCER
     Dosage: 143 MG (3RD DOSE)
     Dates: start: 20071214

REACTIONS (3)
  - DYSPNOEA [None]
  - PHARYNGOLARYNGEAL DISCOMFORT [None]
  - URTICARIA [None]
